FAERS Safety Report 10179672 (Version 1)
Quarter: 2014Q2

REPORT INFORMATION
  Report Type: Spontaneous
  Country: US (occurrence: US)
  Receive Date: 20140519
  Receipt Date: 20140519
  Transmission Date: 20141212
  Serious: No
  Sender: FDA-Public Use
  Company Number: US-BAYER-2014-073601

PATIENT
  Age: 72 Year
  Sex: Male

DRUGS (2)
  1. ALEVE CAPLET [Suspect]
     Indication: ARTHRITIS
     Dosage: 2 DF, BID DAILY
  2. ALEVE CAPLET [Suspect]
     Indication: ARTHRITIS

REACTIONS (1)
  - Extra dose administered [None]
